FAERS Safety Report 7425866-2 (Version None)
Quarter: 2011Q2

REPORT INFORMATION
  Report Type: 
  Country: None (occurrence: None)
  Receive Date: 20110420
  Receipt Date: 20110407
  Transmission Date: 20111010
  Serious: Yes (Other)
  Sender: FDA-Public Use
  Company Number: US-JNJFOC-20110302248

PATIENT
  Sex: Female
  Weight: 88 kg

DRUGS (4)
  1. ASACOL [Concomitant]
  2. CORTIFOAM [Concomitant]
     Route: 054
  3. REMICADE [Suspect]
     Indication: CROHN'S DISEASE
     Route: 042
  4. REMICADE [Suspect]
     Indication: COLITIS ULCERATIVE
     Route: 042

REACTIONS (3)
  - MALIGNANT MELANOMA [None]
  - BASAL CELL CARCINOMA [None]
  - INFUSION RELATED REACTION [None]
